FAERS Safety Report 4819249-9 (Version None)
Quarter: 2005Q4

REPORT INFORMATION
  Report Type: 
  Country: None (occurrence: None)
  Receive Date: 20051103
  Receipt Date: 20050817
  Transmission Date: 20060501
  Serious: Yes (Hospitalization, Disabling)
  Sender: FDA-Public Use
  Company Number: US-MERCK-0508USA03273

PATIENT
  Age: 55 Year
  Sex: Male
  Weight: 96 kg

DRUGS (21)
  1. XANAX [Concomitant]
     Indication: DEPRESSION
     Route: 065
     Dates: start: 20010713
  2. VIOXX [Suspect]
     Indication: ARTHRITIS
     Route: 048
     Dates: start: 20001116, end: 20040901
  3. VIOXX [Suspect]
     Indication: PROCEDURAL PAIN
     Route: 048
     Dates: start: 20001116, end: 20040901
  4. DIOVAN [Concomitant]
     Route: 065
  5. VIAGRA [Concomitant]
     Route: 065
  6. ANDRODERM [Concomitant]
     Route: 065
  7. AMBIEN [Concomitant]
     Route: 065
  8. SKELAXIN [Concomitant]
     Route: 065
  9. HYDROCODONE BITARTRATE [Concomitant]
     Route: 065
  10. LORATADINE [Concomitant]
     Route: 065
  11. AMOXICILLIN [Concomitant]
     Route: 065
  12. Q-BID DM [Concomitant]
     Route: 065
  13. PHENAZOPYRIDINE HYDROCHLORIDE [Concomitant]
     Route: 065
  14. PREVACID [Concomitant]
     Route: 065
  15. TOPROL-XL [Concomitant]
     Route: 065
  16. VICOPROFEN [Concomitant]
     Route: 065
  17. CELEXA [Concomitant]
     Route: 065
  18. AUGMENTIN '125' [Concomitant]
     Route: 065
  19. FLURAZEPAM [Concomitant]
     Route: 065
  20. GUAIFENESIN [Concomitant]
     Route: 065
  21. LEVAQUIN [Concomitant]
     Route: 065

REACTIONS (5)
  - BLOOD CHOLESTEROL INCREASED [None]
  - CARDIAC DISORDER [None]
  - CARDIOVASCULAR DISORDER [None]
  - DEPRESSION [None]
  - MYOCARDIAL INFARCTION [None]
